FAERS Safety Report 10402468 (Version 2)
Quarter: 2014Q3

REPORT INFORMATION
  Report Type: Spontaneous
  Country: US (occurrence: None)
  Receive Date: 20130815
  Receipt Date: 20140815
  Transmission Date: 20150326
  Serious: Yes (Hospitalization, Other)
  Sender: FDA-Public Use
  Company Number: ADR-2012-01492

PATIENT
  Sex: Female

DRUGS (3)
  1. BUPIVACAINE INTRATHECAL [Suspect]
     Active Substance: BUPIVACAINE
  2. COMPOUNDED BACLOFEN INTRATHECAL [Suspect]
     Active Substance: BACLOFEN
  3. COMPOUNDED BACLOFEN INTRATHECAL [Suspect]
     Active Substance: BACLOFEN
     Indication: MUSCLE SPASTICITY

REACTIONS (10)
  - Apnoea [None]
  - Somnolence [None]
  - Therapeutic response decreased [None]
  - Overdose [None]
  - Abnormal behaviour [None]
  - Muscle spasticity [None]
  - Underdose [None]
  - Hypotonia [None]
  - Pain [None]
  - Sedation [None]
